FAERS Safety Report 7249494-7 (Version None)
Quarter: 2011Q1

REPORT INFORMATION
  Report Type: 
  Country: None (occurrence: None)
  Receive Date: 20110128
  Receipt Date: 20110125
  Transmission Date: 20110831
  Serious: Yes (Death, Hospitalization)
  Sender: FDA-Public Use
  Company Number: US-ABBOTT-10P-163-0673285-00

PATIENT
  Sex: Female

DRUGS (2)
  1. ZEMPLAR [Suspect]
     Indication: HYPERPARATHYROIDISM
  2. COUMADIN [Concomitant]
     Indication: CARDIAC DISORDER

REACTIONS (5)
  - BALANCE DISORDER [None]
  - HEAD INJURY [None]
  - SEPSIS [None]
  - FALL [None]
  - HAEMORRHAGE [None]
